FAERS Safety Report 16184977 (Version 1)
Quarter: 2019Q2

REPORT INFORMATION
  Report Type: Spontaneous
  Country: US (occurrence: US)
  Receive Date: 20190313
  Receipt Date: 20190313
  Transmission Date: 20190711
  Serious: No
  Sender: FDA-Public Use
  Company Number: None

PATIENT
  Age: 67 Year
  Sex: Male

DRUGS (1)
  1. EPCLUSA [Suspect]
     Active Substance: SOFOSBUVIR\VELPATASVIR
     Dates: start: 20190125

REACTIONS (10)
  - Back pain [None]
  - Musculoskeletal disorder [None]
  - Dandruff [None]
  - Abdominal discomfort [None]
  - Gait disturbance [None]
  - Pain in extremity [None]
  - Visual impairment [None]
  - Memory impairment [None]
  - Rash [None]
  - Flatulence [None]

NARRATIVE: CASE EVENT DATE: 20190125
